FAERS Safety Report 6266893-0 (Version None)
Quarter: 2009Q3

REPORT INFORMATION
  Report Type: 
  Country: None (occurrence: None)
  Receive Date: 20090714
  Receipt Date: 20090708
  Transmission Date: 20100115
  Serious: Yes (Death, Hospitalization)
  Sender: FDA-Public Use
  Company Number: PHHY2009CN28050

PATIENT
  Age: 66 Year
  Sex: Female

DRUGS (5)
  1. CYCLOSPORINE [Suspect]
     Indication: RENAL TRANSPLANT
     Dosage: 5 MG/KG PER DAY
  2. PREDNISONE [Concomitant]
     Indication: IMMUNOSUPPRESSION
     Dosage: 2 MG/KG PER DAY
  3. PREDNISONE [Concomitant]
     Indication: RENAL TRANSPLANT
  4. EPIRUBICIN [Concomitant]
     Indication: TRANSITIONAL CELL CARCINOMA
     Dosage: 30 MG, QW
     Route: 043
  5. EPIRUBICIN [Concomitant]
     Dosage: 1 DF, QMO

REACTIONS (3)
  - NEPHROURETERECTOMY [None]
  - PNEUMONIA [None]
  - TRANSITIONAL CELL CARCINOMA [None]
